FAERS Safety Report 11212166 (Version 2)
Quarter: 2015Q3

REPORT INFORMATION
  Report Type: Spontaneous
  Country: CZ (occurrence: CZ)
  Receive Date: 20150623
  Receipt Date: 20150722
  Transmission Date: 20151125
  Serious: Yes (Life-Threatening, Hospitalization, Other)
  Sender: FDA-Public Use
  Company Number: CZ-TEVA-570536ISR

PATIENT
  Age: 58 Year
  Sex: Female
  Weight: 63 kg

DRUGS (4)
  1. VITAMIN C [Interacting]
     Active Substance: ASCORBIC ACID
     Route: 041
     Dates: start: 20150603
  2. CANRI [Concomitant]
     Indication: PANCREATIC CARCINOMA
     Route: 041
     Dates: start: 20150609, end: 20150609
  3. OXALIPLATIN TEVA 5 MG/ML [Suspect]
     Active Substance: OXALIPLATIN
     Indication: PANCREATIC CARCINOMA
     Route: 041
     Dates: start: 20150609, end: 20150609
  4. FLUOROURACIL HOSPIRA 50 MG/ML INJEKNI ROZTOK [Concomitant]
     Indication: PANCREATIC CARCINOMA
     Route: 051
     Dates: start: 20150609, end: 20150609

REACTIONS (4)
  - Cyanosis [Recovered/Resolved]
  - Drug interaction [Unknown]
  - Hypersensitivity [Recovered/Resolved]
  - Chills [Recovered/Resolved]

NARRATIVE: CASE EVENT DATE: 20150609
